FAERS Safety Report 8256069-X (Version None)
Quarter: 2012Q2

REPORT INFORMATION
  Report Type: 
  Country: None (occurrence: None)
  Receive Date: 20120403
  Receipt Date: 20120327
  Transmission Date: 20120825
  Serious: Yes (Disabling)
  Sender: FDA-Public Use
  Company Number: JP-PFIZER INC-2012031233

PATIENT
  Age: 60 Year
  Sex: Male
  Weight: 76.9 kg

DRUGS (9)
  1. ACETAMINOPHEN [Concomitant]
     Dosage: 75 MG, 4X/DAY
     Route: 048
  2. PANTOSIN [Concomitant]
     Dosage: 50 MG, 2X/DAY
     Route: 048
  3. CHLOR-TRIMETON [Concomitant]
     Indication: PROPHYLAXIS
     Dosage: 10 MG, WEEKLY
     Route: 042
     Dates: start: 20111101, end: 20111115
  4. PROCHLORPERAZINE [Concomitant]
     Dosage: 2.5 MG, 2X/DAY
     Route: 048
  5. FERROUS CITRATE [Concomitant]
     Dosage: 25 MG, 2X/DAY
     Route: 048
  6. TEMSIROLIMUS [Suspect]
     Indication: METASTATIC RENAL CELL CARCINOMA
     Dosage: 25 MG, WEEKLY
     Route: 042
     Dates: start: 20111101, end: 20111115
  7. LYRICA [Suspect]
     Dosage: 150 MG, 1X/DAY
     Route: 048
  8. FENTANYL [Suspect]
     Indication: METASTATIC PAIN
     Dosage: 4.2 + 2.1 MG/DAY
     Route: 062
  9. MAGNESIUM OXIDE [Concomitant]
     Dosage: 1 G, 2X/DAY
     Route: 048

REACTIONS (1)
  - RENAL DISORDER [None]
